FAERS Safety Report 9255883 (Version 2)
Quarter: 2013Q2

REPORT INFORMATION
  Report Type: Report from Study
  Country: CA (occurrence: CA)
  Receive Date: 20130425
  Receipt Date: 20130612
  Transmission Date: 20140414
  Serious: Yes (Hospitalization)
  Sender: FDA-Public Use
  Company Number: CA-PFIZER INC-2013119019

PATIENT
  Age: 68 Year
  Sex: Male

DRUGS (7)
  1. SERTRALINE HCL [Suspect]
     Indication: MAJOR DEPRESSION
     Dosage: 150 MG, 1X/DAY
     Route: 048
     Dates: start: 20130314, end: 20130422
  2. OLANZAPINE [Suspect]
     Indication: MAJOR DEPRESSION
     Dosage: 15 MG, 1X/DAY
     Route: 048
     Dates: start: 20130312, end: 20130422
  3. ZOPICLONE [Concomitant]
     Indication: INSOMNIA
     Dosage: 7.5 MG, UNK
     Route: 048
     Dates: start: 2013
  4. DOCUSATE SODIUM [Concomitant]
     Indication: CONSTIPATION
     Dosage: 100 MG, UNK
     Route: 048
     Dates: start: 20130313
  5. ATORVASTATIN CALCIUM [Concomitant]
     Indication: BLOOD CHOLESTEROL
     Dosage: 200 MG, UNK
     Route: 048
  6. AMLODIPINE BESILATE [Concomitant]
     Indication: BLOOD PRESSURE
     Dosage: 10 MG, UNK
     Route: 048
  7. NITROFURANTOIN MONOHYDRATE [Concomitant]
     Indication: URINARY TRACT INFECTION
     Dosage: UNK
     Route: 048
     Dates: start: 20130409

REACTIONS (1)
  - Suicide attempt [Unknown]
